FAERS Safety Report 11065734 (Version 1)
Quarter: 2015Q2

REPORT INFORMATION
  Report Type: Spontaneous
  Country: US (occurrence: US)
  Receive Date: 20150425
  Receipt Date: 20150425
  Transmission Date: 20150821
  Serious: Yes (Hospitalization)
  Sender: FDA-Public Use
  Company Number: US-CIPLA LTD.-2015US03211

PATIENT

DRUGS (12)
  1. RISPERIDONE. [Suspect]
     Active Substance: RISPERIDONE
  2. SERTRALINE [Suspect]
     Active Substance: SERTRALINE HYDROCHLORIDE
  3. MOOD STABILIZERS [Suspect]
     Active Substance: UNSPECIFIED INGREDIENT
  4. LURASIDONE [Suspect]
     Active Substance: LURASIDONE
  5. DIVALPROEX SODIUM. [Suspect]
     Active Substance: DIVALPROEX SODIUM
  6. OLANZAPINE. [Suspect]
     Active Substance: OLANZAPINE
  7. FLUOXETINE [Suspect]
     Active Substance: FLUOXETINE\FLUOXETINE HYDROCHLORIDE
  8. VENLAFAXINE [Suspect]
     Active Substance: VENLAFAXINE HYDROCHLORIDE
  9. DIAZEPAM. [Suspect]
     Active Substance: DIAZEPAM
  10. LITHIUM. [Suspect]
     Active Substance: LITHIUM
  11. METHYLPHENIDATE [Suspect]
     Active Substance: METHYLPHENIDATE
  12. CLONAZEPAM. [Suspect]
     Active Substance: CLONAZEPAM

REACTIONS (4)
  - Renal impairment [None]
  - Suicidal ideation [Unknown]
  - Depression [Unknown]
  - Bipolar disorder [Recovered/Resolved]
